FAERS Safety Report 24460182 (Version 1)
Quarter: 2024Q4

REPORT INFORMATION
  Report Type: Spontaneous
  Country: US (occurrence: US)
  Receive Date: 20241018
  Receipt Date: 20241018
  Transmission Date: 20250114
  Serious: No
  Sender: ROCHE
  Company Number: US-ROCHE-3570635

PATIENT
  Age: 64 Year
  Sex: Male

DRUGS (14)
  1. RITUXIMAB [Suspect]
     Active Substance: RITUXIMAB
     Indication: B-cell lymphoma
     Route: 065
  2. ETOPOSIDE [Suspect]
     Active Substance: ETOPOSIDE
     Indication: B-cell lymphoma
     Route: 065
  3. PREDNISONE [Suspect]
     Active Substance: PREDNISONE
     Indication: B-cell lymphoma
     Route: 065
  4. VINCRISTINE [Suspect]
     Active Substance: VINCRISTINE
     Indication: B-cell lymphoma
     Route: 065
  5. DOXORUBICIN [Suspect]
     Active Substance: DOXORUBICIN
     Indication: B-cell lymphoma
     Route: 065
  6. CYCLOPHOSPHAMIDE [Suspect]
     Active Substance: CYCLOPHOSPHAMIDE
     Indication: B-cell lymphoma
     Route: 065
  7. CYCLOPHOSPHAMIDE [Suspect]
     Active Substance: CYCLOPHOSPHAMIDE
     Indication: Lymphodepletion
  8. PEMBROLIZUMAB [Concomitant]
     Active Substance: PEMBROLIZUMAB
     Indication: B-cell lymphoma
     Dosage: SEVEN CYCLES
     Route: 065
  9. BRENTUXIMAB VEDOTIN [Concomitant]
     Active Substance: BRENTUXIMAB VEDOTIN
     Indication: B-cell lymphoma
     Dosage: THREE CYCLES
     Route: 065
  10. AXICABTAGENE CILOLEUCEL [Concomitant]
     Active Substance: AXICABTAGENE CILOLEUCEL
     Indication: B-cell lymphoma
     Route: 065
  11. FLUDARABINE [Concomitant]
     Active Substance: FLUDARABINE PHOSPHATE
     Indication: Lymphodepletion
     Route: 065
  12. GEMCITABINE [Concomitant]
     Active Substance: GEMCITABINE
     Indication: Non-small cell lung cancer
  13. CISPLATIN [Concomitant]
     Active Substance: CISPLATIN
     Indication: Non-small cell lung cancer
  14. DOCETAXEL [Concomitant]
     Active Substance: DOCETAXEL
     Indication: Non-small cell lung cancer

REACTIONS (1)
  - Disease progression [Unknown]
